FAERS Safety Report 5222436-1 (Version None)
Quarter: 2007Q1

REPORT INFORMATION
  Report Type: 
  Country: None (occurrence: None)
  Receive Date: 20070129
  Receipt Date: 20060130
  Transmission Date: 20070707
  Serious: Yes (Disabling, Other)
  Sender: FDA-Public Use
  Company Number: US-BRISTOL-MYERS SQUIBB COMPANY-11047826

PATIENT
  Age: 51 Year
  Sex: Male
  Weight: 94 kg

DRUGS (1)
  1. CISPLATIN [Suspect]
     Indication: NON-HODGKIN'S LYMPHOMA
     Dosage: GIVEN ONCE EVERY 3 TO 4 WEEKS FOR 3 TREATMENTS
     Route: 042
     Dates: start: 19970101

REACTIONS (5)
  - HYPOAESTHESIA [None]
  - NERVE INJURY [None]
  - PLATELET COUNT DECREASED [None]
  - RENAL IMPAIRMENT [None]
  - WHITE BLOOD CELL COUNT DECREASED [None]
